FAERS Safety Report 13483926 (Version 4)
Quarter: 2018Q2

REPORT INFORMATION
  Report Type: Spontaneous
  Country: IT (occurrence: IT)
  Receive Date: 20170425
  Receipt Date: 20180426
  Transmission Date: 20180711
  Serious: Yes (Hospitalization, Other)
  Sender: FDA-Public Use
  Company Number: IT-AUROBINDO-AUR-APL-2017-32887

PATIENT
  Age: 61 Year
  Sex: Male

DRUGS (6)
  1. INSULIN BASAL [Concomitant]
     Active Substance: INSULIN NOS
     Indication: PRODUCT USED FOR UNKNOWN INDICATION
     Dosage: ()
  2. INSULIN BASAL [Concomitant]
     Active Substance: INSULIN NOS
     Dosage: ()
  3. INSULIN BASAL [Concomitant]
     Active Substance: INSULIN NOS
     Dosage: ()
  4. METFORMIN [Suspect]
     Active Substance: METFORMIN HYDROCHLORIDE
     Indication: TYPE 2 DIABETES MELLITUS
     Route: 048
  5. DAPAGLIFLOZIN. [Suspect]
     Active Substance: DAPAGLIFLOZIN
     Indication: TYPE 2 DIABETES MELLITUS
     Route: 048
  6. INSULIN [Concomitant]
     Active Substance: INSULIN NOS
     Indication: TYPE 2 DIABETES MELLITUS
     Dosage: INSULIN BASAL BOLUS THERAPY

REACTIONS (9)
  - Nausea [Recovered/Resolved]
  - Blood lactic acid increased [Recovering/Resolving]
  - Somnolence [Recovered/Resolved]
  - Ketonuria [Recovering/Resolving]
  - Diabetic ketoacidosis [Recovering/Resolving]
  - Lactic acidosis [Recovered/Resolved]
  - Fatigue [Recovered/Resolved]
  - Metabolic acidosis [Recovering/Resolving]
  - Blood bicarbonate decreased [Recovering/Resolving]
